FAERS Safety Report 4978879-4 (Version None)
Quarter: 2006Q2

REPORT INFORMATION
  Report Type: 
  Country: None (occurrence: None)
  Receive Date: 20060417
  Receipt Date: 20060403
  Transmission Date: 20061013
  Serious: Yes (Other)
  Sender: FDA-Public Use
  Company Number: 223772

PATIENT
  Age: 49 Year
  Sex: Female

DRUGS (7)
  1. XOLAIR [Suspect]
     Indication: ASTHMA
     Dosage: 300 MG, SUBCUTANEOUS
     Route: 058
     Dates: start: 20060113
  2. SINGULAIR [Concomitant]
  3. SERETIDE DISKUS (FLUTICASONE PROPIONATE, SALMETEROL XINAFOATE) [Concomitant]
  4. SALMETEROL XINAFOATE (SALMETEROL XINAFOATE) [Concomitant]
  5. SOLUPRED (PREDNISOLONE) [Concomitant]
  6. AERIUS (DESLORATADINE) [Concomitant]
  7. FLIXONASE (FLUTICASONE PROPIONATE) [Concomitant]

REACTIONS (4)
  - ASTHENIA [None]
  - HYPERTHERMIA [None]
  - INFLUENZA LIKE ILLNESS [None]
  - MYALGIA [None]
